FAERS Safety Report 5822232-8 (Version None)
Quarter: 2008Q3

REPORT INFORMATION
  Report Type: 
  Country: None (occurrence: None)
  Receive Date: 20080725
  Receipt Date: 20080515
  Transmission Date: 20090109
  Serious: No
  Sender: FDA-Public Use
  Company Number: US-AMGEN-KDL271464

PATIENT
  Sex: Female
  Weight: 175.7 kg

DRUGS (14)
  1. PROCRIT [Suspect]
     Indication: RENAL FAILURE CHRONIC
  2. REGLAN [Concomitant]
  3. LASIX [Concomitant]
  4. ELAVIL [Concomitant]
  5. AVAPRO [Concomitant]
  6. METOPROLOL TARTRATE [Concomitant]
  7. GLIPIZIDE [Concomitant]
  8. INSULIN [Concomitant]
  9. HYDROCODONE BITARTRATE [Concomitant]
  10. CALCITRIOL [Concomitant]
  11. ZEMPLAR [Concomitant]
  12. ASPIRIN [Concomitant]
  13. FERGON [Concomitant]
  14. STOOL SOFTENER [Concomitant]

REACTIONS (2)
  - IRON DEFICIENCY ANAEMIA [None]
  - THERAPEUTIC RESPONSE DECREASED [None]
